FAERS Safety Report 25614369 (Version 5)
Quarter: 2025Q4

REPORT INFORMATION
  Report Type: Report from Study
  Country: US (occurrence: US)
  Receive Date: 20250728
  Receipt Date: 20251010
  Transmission Date: 20260118
  Serious: No
  Sender: ACADIA PHARMACEUTICALS
  Company Number: US-ACADIA PHARMACEUTICALS INC.-ACA-2025-TRF-008604

PATIENT
  Age: 26 Year
  Sex: Female
  Weight: 52.163 kg

DRUGS (10)
  1. DAYBUE [Suspect]
     Active Substance: TROFINETIDE
     Indication: Rett syndrome
     Dosage: 50 MILLILITER, BID
     Route: 048
     Dates: start: 20230502
  2. DAYBUE [Suspect]
     Active Substance: TROFINETIDE
     Dosage: 200 MG/ML,50 MILTILITERS BY ORAL ROUTE 2 TIMES A DAY FOR 30 DAYS
     Route: 048
     Dates: start: 20241022
  3. IMODIUM [Concomitant]
     Active Substance: LOPERAMIDE HYDROCHLORIDE
  4. PEDIALYTE [CALCIUM CHLORIDE;GLUCOSE;MAGNESIUM CHLORIDE;POTASSIUM CHLOR [Concomitant]
  5. MEDICAL FOOD [Concomitant]
     Active Substance: MEDICAL FOOD
  6. BACLOFEN [Concomitant]
     Active Substance: BACLOFEN
     Dosage: 10 MILLIGRAM, TID
     Route: 048
     Dates: start: 20231031
  7. BOTOX [Concomitant]
     Active Substance: ONABOTULINUMTOXINA
     Indication: Muscle spasticity
     Dosage: 200 UNIT/100 UNIT VIAL/INJECT 600 UNITS Q 12 WEEKS/HEAD/NECK/TRUNK LOCATIONS:ORIS MASSETER: LEFT AND
     Dates: start: 20200522
  8. FLUOXETINE [Concomitant]
     Active Substance: FLUOXETINE HYDROCHLORIDE
     Dosage: 20 MILLIGRAM/TAKE ONE AND ONE HALF TABLETS (30MG) DAILY
     Route: 048
  9. LESSINA [Concomitant]
     Active Substance: ETHINYL ESTRADIOL\LEVONORGESTREL
     Dosage: UNK, QD/0.1 MG-20 MCG TABLET
     Route: 048
  10. BOTULINUM TOXIN TYPE A [Concomitant]
     Active Substance: BOTULINUM TOXIN TYPE A
     Dosage: 100 UNITS USED
     Dates: start: 20230727

REACTIONS (2)
  - Urinary tract infection [Recovered/Resolved]
  - Diarrhoea [Not Recovered/Not Resolved]

NARRATIVE: CASE EVENT DATE: 20250601
